FAERS Safety Report 13805111 (Version 2)
Quarter: 2017Q3

REPORT INFORMATION
  Report Type: Spontaneous
  Country: US (occurrence: US)
  Receive Date: 20170728
  Receipt Date: 20170807
  Transmission Date: 20171127
  Serious: No
  Sender: FDA-Public Use
  Company Number: US-PFIZER INC-2017324490

PATIENT
  Age: 91 Year
  Sex: Female
  Weight: 65.76 kg

DRUGS (1)
  1. IBRANCE [Suspect]
     Active Substance: PALBOCICLIB
     Indication: BREAST CANCER METASTATIC
     Dosage: 125 MG, CYCLIC (DAYS 1-21 Q 28 DAYS)
     Route: 048
     Dates: start: 20170706, end: 201708

REACTIONS (6)
  - Stomatitis [Unknown]
  - Oral pain [Unknown]
  - Abdominal pain upper [Unknown]
  - Oral candidiasis [Unknown]
  - Neoplasm progression [Unknown]
  - Constipation [Unknown]
